FAERS Safety Report 15767822 (Version 13)
Quarter: 2020Q1

REPORT INFORMATION
  Report Type: Report from Study
  Country: BE (occurrence: BE)
  Receive Date: 20181227
  Receipt Date: 20200214
  Transmission Date: 20200409
  Serious: Yes (Hospitalization, Other)
  Sender: FDA-Public Use
  Company Number: BE-MYLANLABS-2018M1095961

PATIENT
  Age: 76 Year
  Sex: Female
  Weight: 70 kg

DRUGS (29)
  1. CARBOPLATIN. [Suspect]
     Active Substance: CARBOPLATIN
     Indication: OVARIAN CANCER
     Dosage: UNK
     Route: 065
     Dates: start: 20170707
  2. BEVACIZUMAB. [Suspect]
     Active Substance: BEVACIZUMAB
     Dosage: 740.25 MILLIGRAM, 3XW
     Route: 042
     Dates: start: 20180302
  3. PARACETAMOL [Concomitant]
     Active Substance: ACETAMINOPHEN
     Indication: PAIN IN EXTREMITY
     Dosage: UNK
     Route: 065
     Dates: start: 20180209, end: 20180212
  4. PACLITAXEL. [Suspect]
     Active Substance: PACLITAXEL
     Dosage: UNK, Q3W
     Route: 042
     Dates: start: 20180209
  5. COLOFIBER [Concomitant]
     Dosage: UNK
     Route: 065
     Dates: start: 20180216
  6. INJECTAFER [Concomitant]
     Active Substance: FERRIC CARBOXYMALTOSE
     Dosage: UNK
     Route: 065
     Dates: start: 20180309, end: 20180309
  7. PACLITAXEL. [Suspect]
     Active Substance: PACLITAXEL
     Dosage: UNK
     Route: 065
     Dates: start: 20171222
  8. PACLITAXEL. [Suspect]
     Active Substance: PACLITAXEL
     Dosage: 1 DOSAGE FORM, 3XW
     Route: 042
     Dates: start: 20180209
  9. INJECTAFER [Concomitant]
     Active Substance: FERRIC CARBOXYMALTOSE
     Dosage: UNK
     Route: 065
     Dates: start: 20180209, end: 20180209
  10. BISOPROLOL [Concomitant]
     Active Substance: BISOPROLOL
     Dosage: UNK
     Route: 065
     Dates: end: 20180302
  11. CARBOPLATIN. [Suspect]
     Active Substance: CARBOPLATIN
     Dosage: 1 DOSAGE FORM, Q3W
     Route: 042
     Dates: start: 20180209
  12. BEVACIZUMAB. [Suspect]
     Active Substance: BEVACIZUMAB
     Dosage: 766.5 MILLIGRAM, 3XW
     Route: 042
     Dates: start: 20180504
  13. SPIRONOLACTONE. [Concomitant]
     Active Substance: SPIRONOLACTONE
     Dosage: UNK
  14. FLUDEX                             /00340101/ [Concomitant]
     Active Substance: INDAPAMIDE
     Dosage: UNK
     Route: 065
     Dates: start: 20180806, end: 20180806
  15. DOMPERIDONE [Concomitant]
     Active Substance: DOMPERIDONE
     Indication: NAUSEA
     Dosage: UNK
     Route: 065
     Dates: start: 20180806
  16. DIAZEPAM. [Concomitant]
     Active Substance: DIAZEPAM
     Dosage: UNK
     Route: 065
     Dates: start: 20180216, end: 20180216
  17. DOMPERIDONE [Concomitant]
     Active Substance: DOMPERIDONE
     Dosage: UNK
     Route: 065
     Dates: start: 20180216
  18. PANTOPRAZOL                        /01263201/ [Concomitant]
     Active Substance: PANTOPRAZOLE
     Dosage: UNK
     Route: 065
     Dates: start: 20061002
  19. PAPAVERINE [Concomitant]
     Active Substance: PAPAVERINE
     Dosage: UNK
     Route: 065
     Dates: start: 2009, end: 201802
  20. D-CURE [Concomitant]
     Active Substance: CHOLECALCIFEROL
     Indication: PROPHYLAXIS
     Dosage: UNK
  21. INJECTAFER [Concomitant]
     Active Substance: FERRIC CARBOXYMALTOSE
     Dosage: UNK
  22. GASTRICALM [Concomitant]
     Dosage: UNK
     Route: 065
     Dates: start: 20180219, end: 20180219
  23. PANTOPRAZOLE [Concomitant]
     Active Substance: PANTOPRAZOLE
     Dosage: UNK
     Dates: start: 20061002
  24. PACLITAXEL. [Suspect]
     Active Substance: PACLITAXEL
     Indication: OVARIAN CANCER
     Dosage: UNK
     Route: 065
     Dates: start: 20170707
  25. CARBOPLATIN. [Suspect]
     Active Substance: CARBOPLATIN
     Dosage: UNK
     Route: 065
     Dates: start: 20171222
  26. TRIBVIT [Concomitant]
     Active Substance: CYANOCOBALAMIN\FOLIC ACID\PYRIDOXINE HYDROCHLORIDE
     Dosage: UNK
     Route: 065
     Dates: start: 20180216
  27. ARANESP [Concomitant]
     Active Substance: DARBEPOETIN ALFA
     Dosage: UNK
     Route: 065
     Dates: start: 20180209, end: 20180209
  28. BEVACIZUMAB. [Suspect]
     Active Substance: BEVACIZUMAB
     Indication: OVARIAN CANCER
     Dosage: 1 DOSAGE FORM, Q3W
     Route: 042
     Dates: start: 20171222
  29. INJECTAFER [Concomitant]
     Active Substance: FERRIC CARBOXYMALTOSE
     Dosage: UNK
     Route: 065
     Dates: start: 20180302, end: 20180302

REACTIONS (45)
  - Hyponatraemia [Recovered/Resolved]
  - Automatic bladder [Not Recovered/Not Resolved]
  - Decreased appetite [Recovered/Resolved]
  - Alopecia [Recovered/Resolved]
  - Rash [Recovered/Resolved]
  - Dyspepsia [Not Recovered/Not Resolved]
  - Stomatitis [Not Recovered/Not Resolved]
  - Polyneuropathy [Not Recovered/Not Resolved]
  - Oedema peripheral [Not Recovered/Not Resolved]
  - Vision blurred [Not Recovered/Not Resolved]
  - Amnesia [Not Recovered/Not Resolved]
  - Chest pain [Recovered/Resolved]
  - Diarrhoea [Recovered/Resolved]
  - Constipation [Recovered/Resolved]
  - Insomnia [Not Recovered/Not Resolved]
  - Vomiting [Recovered/Resolved]
  - Vulvovaginal pruritus [Not Recovered/Not Resolved]
  - Post procedural complication [Recovered/Resolved with Sequelae]
  - Urinary tract infection [Recovered/Resolved]
  - Fatigue [Not Recovered/Not Resolved]
  - Abdominal pain [Not Recovered/Not Resolved]
  - Eye infection [Not Recovered/Not Resolved]
  - Seroma [Recovering/Resolving]
  - Proctalgia [Recovered/Resolved]
  - Vaginal infection [Recovered/Resolved]
  - Stoma site extravasation [Recovered/Resolved with Sequelae]
  - Hypertension [Recovered/Resolved]
  - Nausea [Not Recovered/Not Resolved]
  - Emotional distress [Recovered/Resolved]
  - Gastrooesophageal reflux disease [Not Recovered/Not Resolved]
  - Viral infection [Recovered/Resolved]
  - Hypotension [Recovered/Resolved]
  - Arthralgia [Not Recovered/Not Resolved]
  - Abdominal pain upper [Not Recovered/Not Resolved]
  - Headache [Recovered/Resolved]
  - Peripheral sensory neuropathy [Not Recovered/Not Resolved]
  - Oral herpes [Recovered/Resolved]
  - Pain in extremity [Recovered/Resolved]
  - Hypokalaemia [Recovered/Resolved]
  - Musculoskeletal pain [Recovered/Resolved]
  - Onychalgia [Not Recovered/Not Resolved]
  - Catheter site discharge [Recovered/Resolved with Sequelae]
  - Infection [Recovered/Resolved]
  - Epistaxis [Recovered/Resolved]
  - Pruritus [Not Recovered/Not Resolved]

NARRATIVE: CASE EVENT DATE: 20171229
